FAERS Safety Report 15172143 (Version 1)
Quarter: 2018Q3

REPORT INFORMATION
  Report Type: Spontaneous
  Country: US (occurrence: US)
  Receive Date: 20180622
  Receipt Date: 20180622
  Transmission Date: 20181010
  Serious: No
  Sender: FDA-Public Use
  Company Number: None

PATIENT
  Age: 52 Year
  Sex: Male
  Weight: 102.15 kg

DRUGS (18)
  1. TOPROL XL [Concomitant]
     Active Substance: METOPROLOL SUCCINATE
  2. LYRICA [Concomitant]
     Active Substance: PREGABALIN
  3. BREO ELLIPTA [Concomitant]
     Active Substance: FLUTICASONE FUROATE\VILANTEROL TRIFENATATE
  4. ATORVASTIN CALCIUM TABLETS (40 MG) [Suspect]
     Active Substance: ATORVASTATIN CALCIUM
     Indication: BLOOD CHOLESTEROL INCREASED
     Dosage: ?          QUANTITY:1 TABLET(S);?
     Route: 048
     Dates: start: 20140601, end: 20180516
  5. METFORMIN ER [Concomitant]
     Active Substance: METFORMIN HYDROCHLORIDE
  6. VITAMIN D3 [Concomitant]
     Active Substance: CHOLECALCIFEROL
  7. CYMBALTA [Concomitant]
     Active Substance: DULOXETINE HYDROCHLORIDE
  8. FLONASE [Concomitant]
     Active Substance: FLUTICASONE PROPIONATE
  9. COENZYME Q10 [Concomitant]
     Active Substance: UBIDECARENONE
  10. BASAGLAR [Concomitant]
     Active Substance: INSULIN GLARGINE
  11. MULTIVITAMIN [Concomitant]
     Active Substance: VITAMINS
  12. HUMALOG [Concomitant]
     Active Substance: INSULIN LISPRO
  13. ZESTORETIC [Concomitant]
     Active Substance: HYDROCHLOROTHIAZIDE\LISINOPRIL
  14. TESTOSTERONE CYPIONATE. [Concomitant]
     Active Substance: TESTOSTERONE CYPIONATE
  15. FIORICET [Concomitant]
     Active Substance: ACETAMINOPHEN\BUTALBITAL\CAFFEINE
  16. VENTOLIN [Concomitant]
     Active Substance: ALBUTEROL SULFATE
  17. EPIPEN [Concomitant]
     Active Substance: EPINEPHRINE
  18. ASPIRIN. [Concomitant]
     Active Substance: ASPIRIN

REACTIONS (3)
  - Myalgia [None]
  - Fatigue [None]
  - Mental disorder [None]

NARRATIVE: CASE EVENT DATE: 20180516
